FAERS Safety Report 4756165-5 (Version None)
Quarter: 2005Q3

REPORT INFORMATION
  Report Type: 
  Country: None (occurrence: None)
  Receive Date: 20050829
  Receipt Date: 20050829
  Transmission Date: 20060218
  Serious: No
  Sender: FDA-Public Use
  Company Number: None

PATIENT
  Sex: Male
  Weight: 63.2 kg

DRUGS (1)
  1. FLUCONAZOLE [Suspect]
     Indication: OESOPHAGEAL CANDIDIASIS
     Dosage: 200MG  DAILY  PO
     Route: 048
     Dates: start: 20050810, end: 20050817

REACTIONS (2)
  - BRADYCARDIA [None]
  - HYPOKALAEMIA [None]
